FAERS Safety Report 16239440 (Version 1)
Quarter: 2019Q2

REPORT INFORMATION
  Report Type: Report from Study
  Country: US (occurrence: US)
  Receive Date: 20190425
  Receipt Date: 20190425
  Transmission Date: 20190711
  Serious: Yes (Other)
  Sender: FDA-Public Use
  Company Number: US-BAYER-2019-083895

PATIENT
  Age: 60 Year
  Sex: Male

DRUGS (1)
  1. BETASERON [Suspect]
     Active Substance: INTERFERON BETA-1B
     Indication: MULTIPLE SCLEROSIS
     Dosage: 0.25 MG, QOD
     Route: 058
     Dates: start: 20151201

REACTIONS (9)
  - Back pain [None]
  - Multiple sclerosis relapse [None]
  - Obsessive-compulsive disorder [None]
  - Anxiety [None]
  - Mobility decreased [None]
  - Depression [None]
  - Delirium [None]
  - Insomnia [None]
  - Muscular weakness [Not Recovered/Not Resolved]

NARRATIVE: CASE EVENT DATE: 201902
